FAERS Safety Report 8589543-7 (Version None)
Quarter: 2012Q3

REPORT INFORMATION
  Report Type: 
  Country: None (occurrence: None)
  Receive Date: 20120813
  Receipt Date: 20120718
  Transmission Date: 20120928
  Serious: Yes (Other)
  Sender: FDA-Public Use
  Company Number: JP-009507513-1208JPN005025

PATIENT

DRUGS (5)
  1. REBETOL [Suspect]
     Indication: HEPATITIS C
     Route: 048
     Dates: start: 20120404, end: 20120502
  2. ALLEGRA [Concomitant]
     Indication: HEPATITIS C
     Route: 048
     Dates: start: 20120404, end: 20120502
  3. TELAVIC [Suspect]
     Indication: HEPATITIS C
     Route: 048
     Dates: start: 20120404, end: 20120502
  4. VOLTAREN-XR [Concomitant]
     Indication: HEPATITIS C
     Dosage: 375MG/DAY, AS NEEDED
     Route: 048
     Dates: start: 20120404, end: 20120502
  5. PEGINTERFERON ALFA-2B [Suspect]
     Indication: HEPATITIS C
     Dosage: 1.5MCG/KG/WEEK
     Route: 058
     Dates: start: 20120404, end: 20120502

REACTIONS (2)
  - MALAISE [None]
  - NAUSEA [None]
